FAERS Safety Report 25988091 (Version 1)
Quarter: 2025Q4

REPORT INFORMATION
  Report Type: Report from Study
  Country: EU (occurrence: EU)
  Receive Date: 20251103
  Receipt Date: 20251103
  Transmission Date: 20260118
  Serious: Yes (Other)
  Sender: ASTELLAS
  Company Number: EU-002147023-NVSC2025NL139671

PATIENT
  Age: 40 Year
  Sex: Male
  Weight: 88 kg

DRUGS (5)
  1. TACROLIMUS [Suspect]
     Active Substance: TACROLIMUS
     Indication: Renal transplant
     Dosage: 4 MG (LAST DOSE PRIOR TO AE: 15 JUL 2025)
     Route: 065
     Dates: start: 20220607
  2. PREDNISOLONE [Suspect]
     Active Substance: PREDNISOLONE
     Indication: Renal transplant
     Dosage: 5 MG (LAST DOSE PRIOR TO AE: 15 JUL 2025)
     Route: 065
     Dates: start: 20250607
  3. IPTACOPAN [Suspect]
     Active Substance: IPTACOPAN
     Indication: IgA nephropathy
     Dosage: 200 MG, BID (LAST DOSE OF DRUG TAKEN PRIOR TO AE WAS ON 15 JUL 2025)
     Route: 048
     Dates: start: 20250228
  4. IPTACOPAN [Suspect]
     Active Substance: IPTACOPAN
     Indication: Disease recurrence
  5. CELLCEPT [Suspect]
     Active Substance: MYCOPHENOLATE MOFETIL
     Indication: Renal transplant
     Dosage: 500 MG (LAST DOSE PRIOR TO AE: 15 JUL 2025)
     Route: 065
     Dates: start: 20220607

REACTIONS (4)
  - Erysipelas [Recovered/Resolved]
  - Pain in extremity [Unknown]
  - Peripheral swelling [Unknown]
  - Erythema [Unknown]

NARRATIVE: CASE EVENT DATE: 20250715
